FAERS Safety Report 18773915 (Version 2)
Quarter: 2021Q2

REPORT INFORMATION
  Report Type: Spontaneous
  Country: BR (occurrence: BR)
  Receive Date: 20210122
  Receipt Date: 20210630
  Transmission Date: 20210717
  Serious: Yes (Hospitalization)
  Sender: FDA-Public Use
  Company Number: BR-JNJFOC-20210133151

PATIENT
  Age: 86 Year
  Sex: Female
  Weight: 70.5 kg

DRUGS (8)
  1. EZETIMIBE. [Concomitant]
     Active Substance: EZETIMIBE
     Indication: DIABETES MELLITUS
     Dosage: 10 MILLIGRAM, 1/DAY
     Route: 048
     Dates: start: 19940101
  2. INSULIN [Concomitant]
     Active Substance: INSULIN NOS
     Indication: DIABETES MELLITUS
     Dosage: 10 INTERNATIONAL UNIT, 2/DAY
     Route: 058
     Dates: start: 19940101
  3. CARVEDILOL. [Concomitant]
     Active Substance: CARVEDILOL
     Indication: CORONARY ARTERY DISEASE
     Dosage: 6.25 MILLIGRAM, 2/DAY
     Route: 048
     Dates: start: 20020101
  4. ACETYLSALICYLIC ACID [Concomitant]
     Active Substance: ASPIRIN
     Indication: CORONARY ARTERY DISEASE
     Dosage: 100 MILLIGRAM, 1/DAY
     Route: 048
     Dates: start: 20020101
  5. SIMVASTATINE [Concomitant]
     Active Substance: SIMVASTATIN
     Indication: CORONARY ARTERY DISEASE
     Dosage: 20 MILLIGRAM, 1/DAY
     Route: 048
     Dates: start: 20020101
  6. MIRTAZAPINE. [Concomitant]
     Active Substance: MIRTAZAPINE
     Indication: DEPRESSION
     Dosage: 45 MILLIGRAM, 1/DAY
     Route: 048
     Dates: start: 20050101
  7. ENALAPRIL [Concomitant]
     Active Substance: ENALAPRIL
     Indication: HYPERTENSION
     Dosage: 10 MILLIGRAM, 2/DAY
     Route: 048
     Dates: start: 19840101
  8. TRAMADOL HYDROCHLORIDE. [Suspect]
     Active Substance: TRAMADOL HYDROCHLORIDE
     Indication: LUMBAR VERTEBRAL FRACTURE
     Dosage: UNK UNK, AS NEEDED
     Route: 048
     Dates: start: 20201230, end: 20210107

REACTIONS (3)
  - Colitis [Recovered/Resolved]
  - Constipation [Unknown]
  - Bile duct stone [Unknown]

NARRATIVE: CASE EVENT DATE: 20210107
